FAERS Safety Report 7754311-2 (Version None)
Quarter: 2011Q3

REPORT INFORMATION
  Report Type: 
  Country: None (occurrence: None)
  Receive Date: 20110915
  Receipt Date: 20110906
  Transmission Date: 20111222
  Serious: Yes (Hospitalization, Other)
  Sender: FDA-Public Use
  Company Number: US-BAYER-2011-025427

PATIENT
  Age: 36 Year
  Sex: Female
  Weight: 99.773 kg

DRUGS (17)
  1. AZITHROMYCIN [Concomitant]
     Dosage: UNK
     Dates: start: 20090201
  2. AURALGAN SOLUTION [Concomitant]
     Indication: OTITIS MEDIA
     Dosage: UNK UNK, QID
     Dates: start: 20090206
  3. AMOXICILLIN [Concomitant]
     Dosage: 500 MG, TID
     Route: 048
     Dates: start: 20090201
  4. SYMBICORT [Concomitant]
     Indication: ASTHMA
  5. ALBUTEROL [Concomitant]
     Indication: UPPER RESPIRATORY TRACT INFECTION
     Dosage: UNK UNK, PRN
     Dates: start: 20090206
  6. ZOLOFT [Concomitant]
     Dosage: 50 MG, QD
     Route: 048
  7. AUGMENTIN '125' [Concomitant]
     Indication: PHARYNGITIS
     Dosage: UNK UNK, BID
     Route: 048
     Dates: start: 20090206
  8. ETHEDENT [Concomitant]
  9. PREDNISONE [Concomitant]
     Dosage: UNK
     Dates: start: 20090220, end: 20090317
  10. ASCORBIC ACID [Concomitant]
     Dosage: 500 MG, QD
     Route: 048
  11. YAZ [Suspect]
     Indication: CONTRACEPTION
     Dosage: UNK
     Dates: start: 20081123, end: 20090601
  12. LEVAQUIN [Concomitant]
     Indication: UPPER RESPIRATORY TRACT INFECTION
     Dosage: 500 MG, QD
     Dates: start: 20090305
  13. MULTI-VITAMIN [Concomitant]
     Dosage: UNK UNK, QD
     Route: 048
  14. XOPENEX [Concomitant]
     Indication: UPPER RESPIRATORY TRACT INFECTION
     Dosage: UNK UNK, QID
     Route: 048
     Dates: start: 20090220, end: 20090327
  15. SYMBICORT [Concomitant]
     Indication: UPPER RESPIRATORY TRACT INFECTION
     Dosage: UNK UNK, BID
     Route: 048
     Dates: start: 20090318, end: 20090327
  16. ALBUTEROL [Concomitant]
     Indication: BRONCHITIS
  17. ADVIL LIQUI-GELS [Concomitant]
     Indication: PAIN
     Dosage: 800 MG, PRN
     Dates: start: 20090315, end: 20090327

REACTIONS (9)
  - DEEP VEIN THROMBOSIS [None]
  - PAIN [None]
  - GENERAL PHYSICAL HEALTH DETERIORATION [None]
  - INJURY [None]
  - PULMONARY EMBOLISM [None]
  - EMOTIONAL DISTRESS [None]
  - ANXIETY [None]
  - ANHEDONIA [None]
  - PULMONARY HYPERTENSION [None]
